FAERS Safety Report 15090697 (Version 1)
Quarter: 2018Q2

REPORT INFORMATION
  Report Type: Spontaneous
  Country: FR (occurrence: FR)
  Receive Date: 20180629
  Receipt Date: 20180629
  Transmission Date: 20180711
  Serious: Yes (Hospitalization)
  Sender: FDA-Public Use
  Company Number: FR-VERTEX PHARMACEUTICALS-2018-004364

PATIENT
  Age: 14 Year
  Sex: Female
  Weight: 50 kg

DRUGS (9)
  1. TOCO [Concomitant]
     Active Substance: UNSPECIFIED INGREDIENT
  2. UVEDOSE [Concomitant]
     Active Substance: CHOLECALCIFEROL
  3. AIROMIR                            /00139502/ [Concomitant]
     Active Substance: ALBUTEROL SULFATE
  4. ORKAMBI [Suspect]
     Active Substance: IVACAFTOR\LUMACAFTOR
     Indication: CYSTIC FIBROSIS
     Dosage: 4 DOSAGE FORM, QD
     Route: 048
     Dates: start: 20161008, end: 20180219
  5. SOLUPRED                           /00016217/ [Concomitant]
     Active Substance: PREDNISOLONE
  6. ITRACONAZOLE. [Concomitant]
     Active Substance: ITRACONAZOLE
  7. PULMOZYME [Concomitant]
     Active Substance: DORNASE ALFA
  8. ZYRTEC [Concomitant]
     Active Substance: CETIRIZINE HYDROCHLORIDE
  9. BETASELEN [Concomitant]

REACTIONS (1)
  - Hepatitis [Recovered/Resolved]

NARRATIVE: CASE EVENT DATE: 20180219
